FAERS Safety Report 23269538 (Version 2)
Quarter: 2023Q4

REPORT INFORMATION
  Report Type: Spontaneous
  Country: US (occurrence: US)
  Receive Date: 20231207
  Receipt Date: 20231221
  Transmission Date: 20240110
  Serious: Yes (Hospitalization)
  Sender: FDA-Public Use
  Company Number: US-AUROBINDO-AUR-APL-2023-076541

PATIENT
  Age: 85 Year
  Sex: Female
  Weight: 55.8 kg

DRUGS (3)
  1. LIDOCAINE HYDROCHLORIDE [Suspect]
     Active Substance: DEXTROSE MONOHYDRATE\EPINEPHRINE\EPINEPHRINE BITARTRATE\LIDOCAINE\LIDOCAINE HYDROCHLORIDE\LIDOCAINE
     Indication: Arthritis
     Dosage: 1 MILLILITER
     Route: 065
     Dates: start: 20231113, end: 20231113
  2. BUPIVACAINE HYDROCHLORIDE [Concomitant]
     Active Substance: BUPIVACAINE HYDROCHLORIDE\BUPIVACAINE HYDROCHLORIDE ANHYDROUS
     Indication: Tooth abscess
     Dosage: 2 MILLILITER
     Route: 065
  3. BETAMETHASONE ACETATE\BETAMETHASONE SODIUM PHOSPHATE [Concomitant]
     Active Substance: BETAMETHASONE ACETATE\BETAMETHASONE SODIUM PHOSPHATE
     Indication: Tooth abscess
     Dosage: 12 MILLIGRAM
     Route: 065

REACTIONS (4)
  - Condition aggravated [Unknown]
  - Arthralgia [Unknown]
  - Drug ineffective [Unknown]
  - Infection [Unknown]

NARRATIVE: CASE EVENT DATE: 20231113
